FAERS Safety Report 11295087 (Version 1)
Quarter: 2015Q3

REPORT INFORMATION
  Report Type: Spontaneous
  Country: US (occurrence: None)
  Receive Date: 20150722
  Receipt Date: 20150722
  Transmission Date: 20151125
  Serious: No
  Sender: FDA-Public Use
  Company Number: None

PATIENT
  Age: 49 Year
  Sex: Female
  Weight: 111.13 kg

DRUGS (4)
  1. DULOXETINE 60 MG TEVA [Suspect]
     Active Substance: DULOXETINE
     Indication: DEPRESSION
     Route: 048
     Dates: start: 20150718
  2. NUVIGIL [Concomitant]
     Active Substance: ARMODAFINIL
  3. CLAP MACHINE [Concomitant]
  4. LISINOPRIL. [Concomitant]
     Active Substance: LISINOPRIL

REACTIONS (6)
  - Hypoaesthesia oral [None]
  - Drug ineffective [None]
  - Product formulation issue [None]
  - Irritability [None]
  - Product substitution issue [None]
  - Anxiety [None]

NARRATIVE: CASE EVENT DATE: 20150718
